FAERS Safety Report 21334764 (Version 1)
Quarter: 2022Q3

REPORT INFORMATION
  Report Type: Other
  Country: US (occurrence: US)
  Receive Date: 20220914
  Receipt Date: 20220914
  Transmission Date: 20221027
  Serious: No
  Sender: FDA-Public Use
  Company Number: US-LEADIANT BIOSCIENCES INC-2022STPI000161

PATIENT
  Sex: Female

DRUGS (1)
  1. MATULANE [Suspect]
     Active Substance: PROCARBAZINE HYDROCHLORIDE
     Indication: Follicular lymphoma
     Dosage: 50 MILLIGRAM, 200 BY MOUTH DAILY ON DAYS 1 TO 7 OF EACH 14 DAY CYCLE
     Route: 048
     Dates: start: 20220421

REACTIONS (1)
  - Constipation [Unknown]
